FAERS Safety Report 20712426 (Version 3)
Quarter: 2022Q3

REPORT INFORMATION
  Report Type: Report from Study
  Country: FR (occurrence: FR)
  Receive Date: 20220415
  Receipt Date: 20220801
  Transmission Date: 20221026
  Serious: Yes (Other)
  Sender: FDA-Public Use
  Company Number: FR-BRISTOL-MYERS SQUIBB COMPANY-2022-017704

PATIENT
  Age: 73 Year
  Sex: Female

DRUGS (2)
  1. AZACITIDINE [Suspect]
     Active Substance: AZACITIDINE
     Indication: Acute myeloid leukaemia
     Route: 048
     Dates: start: 20210817
  2. AZACITIDINE [Suspect]
     Active Substance: AZACITIDINE
     Route: 048

REACTIONS (2)
  - COVID-19 [Unknown]
  - Platelet toxicity [Recovering/Resolving]

NARRATIVE: CASE EVENT DATE: 20220301
